FAERS Safety Report 6227183-5 (Version None)
Quarter: 2009Q2

REPORT INFORMATION
  Report Type: 
  Country: None (occurrence: None)
  Receive Date: 20090612
  Receipt Date: 20090605
  Transmission Date: 20091009
  Serious: Yes (Other)
  Sender: FDA-Public Use
  Company Number: US-NAPPMUNDI-USA-2009-0038533

PATIENT
  Sex: Male

DRUGS (3)
  1. OXYCONTIN [Suspect]
     Indication: BACK PAIN
     Dosage: UNK MG, SEE TEXT
     Dates: start: 20050101, end: 20070801
  2. ULTRAM [Concomitant]
     Indication: MYALGIA
     Dosage: UNK
  3. IBUPROFEN [Concomitant]
     Indication: HEADACHE
     Dosage: 800 MG, PRN

REACTIONS (9)
  - ANXIETY [None]
  - ARTHRALGIA [None]
  - BLOOD PRESSURE DECREASED [None]
  - CHILLS [None]
  - DRUG DETOXIFICATION [None]
  - DRUG WITHDRAWAL SYNDROME [None]
  - DYSPNOEA [None]
  - MYALGIA [None]
  - PARAESTHESIA [None]
